FAERS Safety Report 5973404-3 (Version None)
Quarter: 2008Q4

REPORT INFORMATION
  Report Type: 
  Country: None (occurrence: None)
  Receive Date: 20081201
  Receipt Date: 20081124
  Transmission Date: 20090506
  Serious: Yes (Hospitalization)
  Sender: FDA-Public Use
  Company Number: US-ASTRAZENECA-2008UW26259

PATIENT
  Sex: Female

DRUGS (1)
  1. ZOMIG [Suspect]
     Indication: HEADACHE
     Route: 048

REACTIONS (2)
  - DRUG INEFFECTIVE [None]
  - MENTAL DISORDER [None]
